FAERS Safety Report 19732776 (Version 2)
Quarter: 2021Q4

REPORT INFORMATION
  Report Type: Spontaneous
  Country: None (occurrence: BR)
  Receive Date: 20210823
  Receipt Date: 20211022
  Transmission Date: 20220303
  Serious: Yes (Death, Other)
  Sender: FDA-Public Use
  Company Number: BR-ROCHE-2826165

PATIENT
  Age: 3 Month
  Sex: Male

DRUGS (3)
  1. GANCICLOVIR [Interacting]
     Active Substance: GANCICLOVIR
     Indication: Product used for unknown indication
     Route: 065
  2. PHENOBARBITAL [Interacting]
     Active Substance: PHENOBARBITAL
     Indication: Product used for unknown indication
     Route: 065
  3. RISDIPLAM [Interacting]
     Active Substance: RISDIPLAM
     Indication: Spinal muscular atrophy
     Dosage: ADMINISTRATION 1 HOUR BEFORE DIET
     Route: 065
     Dates: start: 20210502

REACTIONS (2)
  - Bradycardia [Not Recovered/Not Resolved]
  - Drug interaction [Unknown]

NARRATIVE: CASE EVENT DATE: 20210504
